FAERS Safety Report 5646597-5 (Version None)
Quarter: 2008Q1

REPORT INFORMATION
  Report Type: 
  Country: None (occurrence: None)
  Receive Date: 20080303
  Receipt Date: 20080220
  Transmission Date: 20080703
  Serious: Yes (Death, Life-Threatening, Hospitalization, Other)
  Sender: FDA-Public Use
  Company Number: LY-ABBOTT-08R-097-0440395-00

PATIENT
  Sex: Male
  Weight: 5.75 kg

DRUGS (1)
  1. SURVANTA [Suspect]
     Indication: RESPIRATORY DISTRESS
     Dosage: 4 ML/KG
     Route: 039
     Dates: start: 20080216, end: 20080216

REACTIONS (5)
  - BRADYCARDIA [None]
  - CARDIAC ARREST [None]
  - CONGENITAL PNEUMONIA [None]
  - HYPOTONIA [None]
  - RESPIRATORY DISTRESS [None]
